FAERS Safety Report 25250104 (Version 1)
Quarter: 2025Q2

REPORT INFORMATION
  Report Type: Spontaneous
  Country: BR (occurrence: BR)
  Receive Date: 20250429
  Receipt Date: 20250429
  Transmission Date: 20250717
  Serious: Yes (Other)
  Sender: ACCORD
  Company Number: BR-Accord-481820

PATIENT
  Age: 65 Year
  Sex: Female
  Weight: 67.9 kg

DRUGS (18)
  1. PACLITAXEL [Suspect]
     Active Substance: PACLITAXEL
     Indication: Invasive lobular breast carcinoma
     Route: 042
     Dates: start: 20240205, end: 20240205
  2. DEXAMETHASONE [Concomitant]
     Active Substance: DEXAMETHASONE
     Indication: Chemotherapy side effect prophylaxis
     Route: 042
     Dates: start: 20240205, end: 20240205
  3. DIPHENHYDRAMINE HYDROCHLORIDE [Concomitant]
     Active Substance: DIPHENHYDRAMINE HYDROCHLORIDE
     Indication: Chemotherapy side effect prophylaxis
     Route: 042
     Dates: start: 20240205, end: 20240205
  4. ONDANSETRON [Concomitant]
     Active Substance: ONDANSETRON
     Indication: Chemotherapy side effect prophylaxis
     Route: 042
     Dates: start: 20240205, end: 20240205
  5. DEXAMETHASONE [Concomitant]
     Active Substance: DEXAMETHASONE
     Indication: Chemotherapy side effect prophylaxis
     Route: 048
     Dates: start: 20240204, end: 20240208
  6. GABAPENTIN [Concomitant]
     Active Substance: GABAPENTIN
     Indication: Neuralgia
     Route: 048
     Dates: start: 20231130, end: 20240603
  7. METAMIZOLE MAGNESIUM [Concomitant]
     Active Substance: METAMIZOLE MAGNESIUM
     Indication: Cancer pain
     Route: 048
     Dates: start: 20240323, end: 20240621
  8. DIAZEPAM [Concomitant]
     Active Substance: DIAZEPAM
     Indication: Anxiety
     Route: 048
     Dates: start: 20240323, end: 20240621
  9. OMEPRAZOLE [Concomitant]
     Active Substance: OMEPRAZOLE
     Indication: Prophylaxis against gastrointestinal ulcer
     Route: 048
     Dates: start: 20240323, end: 20240621
  10. LACTULOSE [Concomitant]
     Active Substance: LACTULOSE
     Indication: Constipation
     Route: 048
     Dates: start: 20240323, end: 20240522
  11. BISOPROLOL [Concomitant]
     Active Substance: BISOPROLOL
  12. LOSARTAN [Concomitant]
     Active Substance: LOSARTAN
  13. HYDROCHLOROTHIAZIDE [Concomitant]
     Active Substance: HYDROCHLOROTHIAZIDE
  14. AMINAPHTONE [Concomitant]
  15. PACLITAXEL [Suspect]
     Active Substance: PACLITAXEL
     Indication: Invasive lobular breast carcinoma
     Route: 042
     Dates: start: 20240415, end: 20240415
  16. DEXAMETHASONE [Concomitant]
     Active Substance: DEXAMETHASONE
     Indication: Chemotherapy side effect prophylaxis
     Route: 042
     Dates: start: 20240415, end: 20240415
  17. DIPHENHYDRAMINE HYDROCHLORIDE [Concomitant]
     Active Substance: DIPHENHYDRAMINE HYDROCHLORIDE
     Indication: Chemotherapy side effect prophylaxis
     Route: 042
     Dates: start: 20240415, end: 20240415
  18. ONDANSETRON [Concomitant]
     Active Substance: ONDANSETRON
     Indication: Chemotherapy side effect prophylaxis
     Route: 042
     Dates: start: 20240415, end: 20240415

REACTIONS (2)
  - Chest discomfort [Recovered/Resolved]
  - Flushing [Recovered/Resolved]

NARRATIVE: CASE EVENT DATE: 20240205
